FAERS Safety Report 6149442-7 (Version None)
Quarter: 2009Q2

REPORT INFORMATION
  Report Type: 
  Country: None (occurrence: None)
  Receive Date: 20090409
  Receipt Date: 20090403
  Transmission Date: 20091009
  Serious: Yes (Hospitalization)
  Sender: FDA-Public Use
  Company Number: US-BIOGENIDEC-2009BI010670

PATIENT
  Age: 21 Year
  Sex: Female

DRUGS (4)
  1. AVONEX [Suspect]
     Indication: MULTIPLE SCLEROSIS
     Route: 030
     Dates: start: 20020101, end: 20020101
  2. AVONEX [Suspect]
     Route: 030
     Dates: start: 20020101, end: 20020101
  3. AVONEX [Suspect]
     Route: 030
     Dates: start: 20020101, end: 20030801
  4. AVONEX [Suspect]
     Route: 030
     Dates: start: 20040501, end: 20040101

REACTIONS (2)
  - CAESAREAN SECTION [None]
  - GASTROENTERITIS VIRAL [None]
